FAERS Safety Report 9264483 (Version 5)
Quarter: 2021Q1

REPORT INFORMATION
  Report Type: Other
  Country: JP (occurrence: JP)
  Receive Date: 20130501
  Receipt Date: 20210304
  Transmission Date: 20210420
  Serious: Yes (Hospitalization)
  Sender: FDA-Public Use
  Company Number: JP-ROCHE-1218256

PATIENT
  Age: 45 Year
  Sex: Female

DRUGS (17)
  1. PRIDOL (JAPAN) [Concomitant]
     Dates: start: 20120222
  2. ALVESCO [Concomitant]
     Active Substance: CICLESONIDE
     Dates: start: 20111121
  3. PREDONINE [Concomitant]
     Active Substance: PREDNISOLONE
     Dates: end: 20120309
  4. MYSLEE [Concomitant]
     Active Substance: ZOLPIDEM TARTRATE
     Dates: start: 20120127
  5. ADOAIR [Concomitant]
     Active Substance: FLUTICASONE PROPIONATE\SALMETEROL XINAFOATE
     Dates: start: 20111121
  6. PREDONINE [Concomitant]
     Active Substance: PREDNISOLONE
     Dates: start: 20111111
  7. TRAZODONE [Concomitant]
     Active Substance: TRAZODONE HYDROCHLORIDE
     Dates: start: 20120127, end: 20120305
  8. SULTANOL [Concomitant]
     Active Substance: ALBUTEROL SULFATE
  9. TAKEPRON [Concomitant]
     Active Substance: LANSOPRAZOLE
     Dates: start: 20120527
  10. HICORT (JAPAN) [Concomitant]
     Dates: start: 20120227
  11. HICORT (JAPAN) [Concomitant]
     Route: 041
     Dates: start: 20120222
  12. OMALIZUMAB. [Suspect]
     Active Substance: OMALIZUMAB
     Dosage: LAST DOSE ON :? 27/MAR/2012
     Route: 058
     Dates: start: 20120221, end: 20120327
  13. PREDONINE [Concomitant]
     Active Substance: PREDNISOLONE
     Dates: start: 20120222, end: 20120224
  14. OMALIZUMAB. [Suspect]
     Active Substance: OMALIZUMAB
     Indication: ASTHMA
     Route: 058
     Dates: start: 20120127
  15. ALLEGRA [Concomitant]
     Active Substance: FEXOFENADINE HYDROCHLORIDE
     Dates: start: 20111121
  16. TETRAMIDE [Concomitant]
     Active Substance: MIANSERIN
     Dates: start: 20120127, end: 20120514
  17. SINGULAIR [Concomitant]
     Active Substance: MONTELUKAST SODIUM
     Dates: start: 20110201

REACTIONS (2)
  - Respiratory disorder [Unknown]
  - Asthma [Recovering/Resolving]

NARRATIVE: CASE EVENT DATE: 20120225
